FAERS Safety Report 6913340-9 (Version None)
Quarter: 2010Q3

REPORT INFORMATION
  Report Type: 
  Country: None (occurrence: None)
  Receive Date: 20100809
  Receipt Date: 20100726
  Transmission Date: 20110219
  Serious: Yes (Hospitalization)
  Sender: FDA-Public Use
  Company Number: PHHY2010JP50040

PATIENT
  Sex: Female

DRUGS (1)
  1. ICL670A ICL+DISTAB [Suspect]
     Indication: IRON OVERLOAD
     Dosage: 500MG DAILY
     Route: 048
     Dates: start: 20091010, end: 20091111

REACTIONS (2)
  - DIARRHOEA [None]
  - ENTEROCOLITIS HAEMORRHAGIC [None]
